FAERS Safety Report 8533829-9 (Version None)
Quarter: 2012Q3

REPORT INFORMATION
  Report Type: 
  Country: None (occurrence: None)
  Receive Date: 20120724
  Receipt Date: 20120716
  Transmission Date: 20120928
  Serious: Yes (Other)
  Sender: FDA-Public Use
  Company Number: US-ROCHE-1087586

PATIENT
  Sex: Female

DRUGS (7)
  1. SYNTHROID [Concomitant]
     Indication: HYPOTHYROIDISM
     Route: 048
  2. ZYRTEC [Concomitant]
     Indication: HYPERSENSITIVITY
     Dosage: DAILY
     Route: 048
  3. XOLAIR [Suspect]
     Indication: ASTHMA
     Route: 058
     Dates: start: 20110919, end: 20120702
  4. SYMBICORT [Concomitant]
     Indication: ASTHMA
     Dosage: 2 PUFFS
  5. COMBIVENT [Concomitant]
     Indication: ASTHMA
     Dosage: 2 PUFFS PRN
  6. SINGULAIR [Concomitant]
     Indication: ASTHMA
     Route: 048
  7. XANAX [Concomitant]
     Indication: HYPOTHYROIDISM
     Route: 048

REACTIONS (2)
  - ASTHMA [None]
  - BACK DISORDER [None]
